FAERS Safety Report 8924511 (Version 3)
Quarter: 2012Q4

REPORT INFORMATION
  Report Type: 
  Country: JP (occurrence: JP)
  Receive Date: 20121127
  Receipt Date: 20121231
  Transmission Date: 20130627
  Serious: Yes (Hospitalization)
  Sender: FDA-Public Use
  Company Number: JP-009507513-1211JPN009526

PATIENT
  Age: 62 Year
  Sex: Female

DRUGS (7)
  1. REFLEX [Suspect]
     Indication: DEPRESSION
     Dosage: 15 mg, qd
     Route: 048
     Dates: start: 20120618, end: 20121102
  2. TOLEDOMIN [Suspect]
     Indication: DEPRESSION
     Dosage: 75 mg, qd
     Route: 048
     Dates: start: 20120709, end: 20120919
  3. TOLEDOMIN [Suspect]
     Dosage: 50 mg, qd
     Route: 048
     Dates: start: 20120920, end: 20121102
  4. TOLEDOMIN [Suspect]
     Dosage: 50 mg, Unknown
     Route: 048
     Dates: start: 200904
  5. BROMAZEPAM [Concomitant]
     Indication: ANXIETY
     Dosage: 10 mg, qd
     Route: 048
     Dates: end: 20121102
  6. ZOLPIDEM TARTRATE [Concomitant]
     Indication: INSOMNIA
     Dosage: 10 mg, Unknown
     Route: 048
     Dates: end: 20121102
  7. SENNOSIDES [Concomitant]
     Indication: CONSTIPATION
     Dosage: 80 mg, Unknown
     Route: 048
     Dates: start: 200904, end: 20121102

REACTIONS (1)
  - Inappropriate antidiuretic hormone secretion [Recovered/Resolved]
